FAERS Safety Report 13403489 (Version 3)
Quarter: 2017Q3

REPORT INFORMATION
  Report Type: Spontaneous
  Country: US (occurrence: US)
  Receive Date: 20170405
  Receipt Date: 20170707
  Transmission Date: 20171127
  Serious: No
  Sender: FDA-Public Use
  Company Number: US-009507513-1704USA001554

PATIENT
  Sex: Female

DRUGS (1)
  1. NUVARING [Suspect]
     Active Substance: ETHINYL ESTRADIOL\ETONOGESTREL
     Dosage: INSERTED A NEW RING IMMEDIATELY AFTER TAKING A RING OUT
     Route: 067

REACTIONS (2)
  - Product use issue [Unknown]
  - No adverse event [Unknown]
